FAERS Safety Report 23186097 (Version 2)
Quarter: 2024Q1

REPORT INFORMATION
  Report Type: Spontaneous
  Country: US (occurrence: US)
  Receive Date: 20231115
  Receipt Date: 20240218
  Transmission Date: 20240410
  Serious: Yes (Other)
  Sender: FDA-Public Use
  Company Number: US-SA-SAC20231113000938

PATIENT
  Age: 65 Year
  Sex: Female

DRUGS (2)
  1. DUPIXENT [Suspect]
     Active Substance: DUPILUMAB
     Indication: Dermatitis atopic
     Dosage: 300 MG, QOW
     Route: 058
     Dates: end: 2023
  2. DUPIXENT [Suspect]
     Active Substance: DUPILUMAB
     Dosage: 300 MG, QOW
     Route: 058
     Dates: start: 2023

REACTIONS (9)
  - Psoriatic arthropathy [Unknown]
  - Malaise [Unknown]
  - COVID-19 [Unknown]
  - Contusion [Unknown]
  - Neurodermatitis [Unknown]
  - Pruritus [Unknown]
  - Visual impairment [Unknown]
  - Eye pruritus [Unknown]
  - Dry eye [Unknown]
